FAERS Safety Report 7017010 (Version 4)
Quarter: 2013Q2

REPORT INFORMATION
  Report Type: Report from Study
  Country: CA (occurrence: CA)
  Receive Date: 20090611
  Receipt Date: 20130515
  Transmission Date: 20140414
  Serious: Yes (Death, Hospitalization, Other)
  Sender: FDA-Public Use
  Company Number: PHHY2009CA21721

PATIENT
  Age: 74 Year
  Sex: Male

DRUGS (4)
  1. CLOZARIL [Suspect]
     Indication: SCHIZOPHRENIA, DISORGANISED TYPE
     Dosage: UNK
     Dates: start: 20040730
  2. CLOZARIL [Suspect]
     Dosage: UNK
     Route: 065
     Dates: start: 20040904
  3. CLOZARIL [Suspect]
     Dosage: 150 MG AT BEDTIME, 17 MG AT SUPPER, 50 MG AT LUNCH AND DINNER
     Route: 048
     Dates: start: 2008
  4. AVELOX [Concomitant]
     Dosage: 1 DF, QD
     Route: 048
     Dates: start: 20130121

REACTIONS (9)
  - Bronchopneumonia [Fatal]
  - Cough [Fatal]
  - Dyspnoea [Fatal]
  - Productive cough [Fatal]
  - Respiratory tract infection [Fatal]
  - Gait disturbance [Unknown]
  - Aggression [Unknown]
  - General physical health deterioration [Unknown]
  - Anaemia macrocytic [Unknown]
